FAERS Safety Report 15353119 (Version 2)
Quarter: 2018Q3

REPORT INFORMATION
  Report Type: Not Available
  Country: US (occurrence: US)
  Receive Date: 20180905
  Receipt Date: 20180919
  Transmission Date: 20181010
  Serious: Yes (Hospitalization)
  Sender: FDA-Public Use
  Company Number: US-NEUROCRINE BIOSCIENCES INC.-2018NBI02620

PATIENT
  Sex: Female

DRUGS (12)
  1. ATORVASTATIN [Concomitant]
     Active Substance: ATORVASTATIN
     Indication: BLOOD CHOLESTEROL INCREASED
  2. IRON [Concomitant]
     Active Substance: IRON
  3. MULTIVITAMIN [Concomitant]
     Active Substance: VITAMINS
  4. TYLENOL [Concomitant]
     Active Substance: ACETAMINOPHEN
     Indication: BACK PAIN
     Dosage: 500?1000 MG
  5. INGREZZA [Suspect]
     Active Substance: VALBENAZINE
     Indication: TARDIVE DYSKINESIA
     Route: 048
     Dates: start: 20171012, end: 2018
  6. INCRUSE INHALER [Concomitant]
  7. AMLODIPINE [Concomitant]
     Active Substance: AMLODIPINE BESYLATE
     Indication: HYPERTENSION
     Dosage: 10 MG IN THE MORNING
  8. LYRICA [Concomitant]
     Active Substance: PREGABALIN
     Indication: BACK PAIN
  9. WARFARIN [Concomitant]
     Active Substance: WARFARIN
     Dosage: AS DIRECTED BASED ON INR RESULTS. AROUND 1 MG 4 DAYS A WEEK. 2 MG 3 DAYS A WEEK
  10. LABETALOL [Concomitant]
     Active Substance: LABETALOL\LABETALOL HYDROCHLORIDE
     Indication: HYPERTENSION
  11. BENZTROPINE. [Concomitant]
     Active Substance: BENZTROPINE
     Indication: TARDIVE DYSKINESIA
  12. ENOXAPARIN [Concomitant]
     Active Substance: ENOXAPARIN

REACTIONS (3)
  - International normalised ratio fluctuation [Recovered/Resolved]
  - Renal failure [Not Recovered/Not Resolved]
  - Product prescribing issue [Unknown]
